FAERS Safety Report 8022466-0 (Version None)
Quarter: 2012Q1

REPORT INFORMATION
  Report Type: 
  Country: None (occurrence: None)
  Receive Date: 20120104
  Receipt Date: 20110808
  Transmission Date: 20120608
  Serious: No
  Sender: FDA-Public Use
  Company Number: US-MYLANLABS-2011S1015161

PATIENT
  Age: 56 Year
  Sex: Female

DRUGS (5)
  1. CHLORDIAZEPOXIDE AND AMITRIPTYLINE HYDROCHLORIDE [Suspect]
     Route: 048
     Dates: start: 20110501
  2. CHLORDIAZEPOXIDE AND AMITRIPTYLINE HYDROCHLORIDE [Suspect]
     Indication: ANXIETY
     Route: 048
     Dates: start: 20110501
  3. CHLORDIAZEPOXIDE AND AMITRIPTYLINE HYDROCHLORIDE [Suspect]
     Indication: DEPRESSION
     Route: 048
     Dates: start: 20110501
  4. CHLORDIAZEPOXIDE AND AMITRIPTYLINE HYDROCHLORIDE [Suspect]
     Route: 048
     Dates: start: 20110501
  5. ZOLPIDEM [Concomitant]
     Indication: INSOMNIA

REACTIONS (8)
  - ANXIETY [None]
  - ASTHENIA [None]
  - DECREASED APPETITE [None]
  - MUSCLE TWITCHING [None]
  - DRUG INEFFECTIVE [None]
  - INSOMNIA [None]
  - NAUSEA [None]
  - WEIGHT DECREASED [None]
